FAERS Safety Report 5244216-3 (Version None)
Quarter: 2007Q2

REPORT INFORMATION
  Report Type: 
  Country: None (occurrence: None)
  Receive Date: 20070222
  Receipt Date: 20070215
  Transmission Date: 20071010
  Serious: Yes (Hospitalization)
  Sender: FDA-Public Use
  Company Number: FI-ROCHE-483282

PATIENT
  Age: 49 Year
  Sex: Male
  Weight: 80 kg

DRUGS (3)
  1. GANCICLOVIR SODIUM [Suspect]
     Indication: GLIOMA
     Route: 042
     Dates: start: 20070127
  2. CEREPRO [Suspect]
     Indication: GLIOMA
     Dosage: DAILY DOSE REPORTED AS 10 ML SINGLE. 1X10 12 VP
     Route: 018
     Dates: start: 20070122, end: 20070122
  3. DEXAMETHASONE [Concomitant]

REACTIONS (1)
  - HEMIPARESIS [None]
